FAERS Safety Report 5105378-1 (Version None)
Quarter: 2006Q3

REPORT INFORMATION
  Report Type: 
  Country: None (occurrence: None)
  Receive Date: 20060731
  Receipt Date: 20051202
  Transmission Date: 20061208
  Serious: Yes (Other)
  Sender: FDA-Public Use
  Company Number: US-JNJFOC-20051201882

PATIENT
  Age: 57 Year
  Sex: Male

DRUGS (2)
  1. RISPERDAL [Suspect]
     Indication: DEMENTIA
     Dosage: 1 MG, IN 1 DAY, ORAL
     Route: 048
     Dates: start: 20030401, end: 20051101
  2. UNSPECIFIED MEDICATIONS (ALL OTHER THERAPEUTIC PRODUCTS) [Concomitant]

REACTIONS (1)
  - DIABETES MELLITUS [None]
